FAERS Safety Report 6599940-7 (Version None)
Quarter: 2010Q1

REPORT INFORMATION
  Report Type: 
  Country: None (occurrence: None)
  Receive Date: 20100224
  Receipt Date: 20100216
  Transmission Date: 20100710
  Serious: Yes (Other)
  Sender: FDA-Public Use
  Company Number: PL-ROCHE-685564

PATIENT
  Sex: Female

DRUGS (2)
  1. ACTEMRA [Suspect]
     Indication: RHEUMATOID ARTHRITIS
     Dosage: THREE ADMINISTRATIONS ALREADY RECEIVED.
     Route: 065
  2. ACTEMRA [Suspect]
     Route: 065
     Dates: start: 20091201

REACTIONS (1)
  - WHITE BLOOD CELL COUNT DECREASED [None]
